FAERS Safety Report 13664307 (Version 2)
Quarter: 2017Q2

REPORT INFORMATION
  Report Type: Spontaneous
  Country: BR (occurrence: BR)
  Receive Date: 20170619
  Receipt Date: 20170620
  Transmission Date: 20170830
  Serious: Yes (Other)
  Sender: FDA-Public Use
  Company Number: BR-009507513-1706BRA008022

PATIENT
  Sex: Female
  Weight: 69 kg

DRUGS (9)
  1. OLCADIL [Concomitant]
     Active Substance: CLOXAZOLAM
     Indication: HYPERTENSION
     Dosage: ONE TABLET (2 MG) DAILY
     Route: 048
     Dates: start: 2011
  2. INSULIN RAPID [Concomitant]
     Active Substance: INSULIN NOS
     Indication: DIABETES MELLITUS
     Dosage: WHEN NECESSARY
     Dates: start: 2015
  3. AZUKON MR [Concomitant]
     Active Substance: GLICLAZIDE
     Indication: DIABETES MELLITUS
     Dosage: UNK
     Route: 048
  4. INSULIN HUMAN [Concomitant]
     Active Substance: INSULIN HUMAN
     Indication: DIABETES MELLITUS
     Dosage: 40 UNITS, IN THE MORNING
     Route: 058
     Dates: start: 1997
  5. JANUVIA [Suspect]
     Active Substance: SITAGLIPTIN PHOSPHATE
     Dosage: UNK
     Route: 048
     Dates: start: 201706
  6. NATRILIX [Concomitant]
     Active Substance: INDAPAMIDE
     Indication: HYPERTENSION
     Dosage: 12.5 MG + 5 MG (TWO TABLETS) DAILY
     Route: 048
     Dates: start: 2011
  7. JANUVIA [Suspect]
     Active Substance: SITAGLIPTIN PHOSPHATE
     Indication: DIABETES MELLITUS
     Dosage: UNK
     Route: 048
     Dates: start: 201705, end: 201706
  8. METOPROLOL TARTRATE. [Concomitant]
     Active Substance: METOPROLOL TARTRATE
     Indication: HYPERTENSION
     Dosage: 50 MG ONCE DAILY IN THE MORNING
     Route: 048
     Dates: start: 2011
  9. AMLODIPINE [Concomitant]
     Active Substance: AMLODIPINE BESYLATE
     Indication: HYPERTENSION
     Dosage: ONE TABLET (2.5 MG) DAILY
     Route: 048
     Dates: start: 2015

REACTIONS (2)
  - Blood glucose increased [Not Recovered/Not Resolved]
  - Diabetes mellitus inadequate control [Not Recovered/Not Resolved]

NARRATIVE: CASE EVENT DATE: 201706
